FAERS Safety Report 12736628 (Version 1)
Quarter: 2016Q3

REPORT INFORMATION
  Report Type: Spontaneous
  Country: US (occurrence: US)
  Receive Date: 20160913
  Receipt Date: 20160913
  Transmission Date: 20161109
  Serious: No
  Sender: FDA-Public Use
  Company Number: US-JNJFOC-20160716359

PATIENT
  Age: 78 Year
  Sex: Female
  Weight: 63.96 kg

DRUGS (4)
  1. TYLENOL 8 HR ARTHRITIS PAIN [Suspect]
     Active Substance: ACETAMINOPHEN
     Route: 048
  2. TYLENOL 8 HR ARTHRITIS PAIN [Suspect]
     Active Substance: ACETAMINOPHEN
     Indication: ANALGESIC THERAPY
     Route: 048
     Dates: start: 20160718
  3. MOBIC [Concomitant]
     Active Substance: MELOXICAM
     Indication: ANALGESIC THERAPY
     Dosage: 10 DAYS
     Route: 065
     Dates: start: 20160709
  4. TRAMADOL. [Suspect]
     Active Substance: TRAMADOL
     Indication: ANALGESIC THERAPY
     Dosage: 1 PILL AS NEEDED.
     Route: 065
     Dates: start: 20160709

REACTIONS (2)
  - Incorrect dose administered [Recovered/Resolved]
  - Somnolence [Recovered/Resolved]

NARRATIVE: CASE EVENT DATE: 20160718
